FAERS Safety Report 12105631 (Version 1)
Quarter: 2016Q1

REPORT INFORMATION
  Report Type: Spontaneous
  Country: US (occurrence: US)
  Receive Date: 20160223
  Receipt Date: 20160223
  Transmission Date: 20160526
  Serious: Yes (Other)
  Sender: FDA-Public Use
  Company Number: US-BAYER-2016-031033

PATIENT
  Age: 61 Year
  Sex: Female
  Weight: 47.17 kg

DRUGS (2)
  1. MIRALAX [Suspect]
     Active Substance: POLYETHYLENE GLYCOL 3350
     Indication: CONSTIPATION
     Dosage: 1 DF, UNK
     Route: 048
     Dates: end: 2015
  2. CORRECTOL NOS [Suspect]
     Active Substance: BISACODYL OR DOCUSATE SODIUM
     Indication: CONSTIPATION
     Dosage: 1 DF, PRN
     Route: 048

REACTIONS (4)
  - Abdominal distension [Recovered/Resolved]
  - Expired product administered [None]
  - Drug dependence [None]
  - Eating disorder [Recovered/Resolved]
